FAERS Safety Report 12986608 (Version 1)
Quarter: 2016Q4

REPORT INFORMATION
  Report Type: Spontaneous
  Country: US (occurrence: US)
  Receive Date: 20161129
  Receipt Date: 20161129
  Transmission Date: 20170207
  Serious: No
  Sender: FDA-Public Use
  Company Number: None

PATIENT
  Age: 71 Year
  Sex: Female

DRUGS (1)
  1. NEUPRO [Suspect]
     Active Substance: ROTIGOTINE
     Indication: RESTLESS LEGS SYNDROME
     Route: 062
     Dates: start: 20161126, end: 20161128

REACTIONS (3)
  - Condition aggravated [None]
  - Restless legs syndrome [None]
  - Product quality issue [None]

NARRATIVE: CASE EVENT DATE: 20161129
